FAERS Safety Report 9191431 (Version 2)
Quarter: 2013Q2

REPORT INFORMATION
  Report Type: Spontaneous
  Country: US (occurrence: US)
  Receive Date: 20130326
  Receipt Date: 20130416
  Transmission Date: 20140414
  Serious: No
  Sender: FDA-Public Use
  Company Number: PHEH2013US006706

PATIENT
  Age: 80 Year
  Sex: Male

DRUGS (7)
  1. TASIGNA [Suspect]
     Indication: NEOPLASM MALIGNANT
     Dosage: 200 MG, BID
     Route: 048
     Dates: start: 20060301
  2. TASIGNA [Suspect]
     Dosage: 200 MG, BID
     Dates: start: 20130121
  3. OMEPRAZOLE [Concomitant]
  4. HYDRALAZINE [Concomitant]
  5. CLONIDINE [Concomitant]
  6. METOPROLOL [Concomitant]
  7. AMLODIPINE [Concomitant]

REACTIONS (3)
  - Tongue discolouration [Not Recovered/Not Resolved]
  - Insomnia [Not Recovered/Not Resolved]
  - Hypoaesthesia oral [Not Recovered/Not Resolved]
